FAERS Safety Report 10044965 (Version 1)
Quarter: 2014Q1

REPORT INFORMATION
  Report Type: Spontaneous
  Country: BR (occurrence: BR)
  Receive Date: 20140328
  Receipt Date: 20140328
  Transmission Date: 20141002
  Serious: Yes (Other)
  Sender: FDA-Public Use
  Company Number: BR-ASTRAZENECA-2014SE19642

PATIENT
  Age: 26 Year
  Sex: 0
  Weight: 78 kg

DRUGS (4)
  1. DIPRIVAN [Suspect]
     Dosage: 4MG/ML
     Route: 042
  2. DIPRIVAN [Suspect]
     Dosage: 7MG/ML
     Route: 042
  3. MIDAZOLAM [Concomitant]
  4. FENTANIL [Concomitant]

REACTIONS (2)
  - Anaesthetic complication [Unknown]
  - Drug effect decreased [Unknown]
